FAERS Safety Report 9236551 (Version 2)
Quarter: 2013Q2

REPORT INFORMATION
  Report Type: Spontaneous
  Country: US (occurrence: US)
  Receive Date: 20130417
  Receipt Date: 20130606
  Transmission Date: 20140414
  Serious: Yes (Other)
  Sender: FDA-Public Use
  Company Number: PHEH2013US008382

PATIENT
  Age: 40 Year
  Sex: Male

DRUGS (4)
  1. TEGRETOL [Suspect]
     Indication: CONVULSION
     Dosage: 400 MG, TID
     Route: 048
     Dates: start: 20100210
  2. TEGRETOL [Suspect]
     Dosage: UNK
     Route: 048
  3. GABAPENTIN [Concomitant]
     Dosage: UNK UKN, UNK
  4. NEURONTIN [Concomitant]
     Indication: CONVULSION
     Dosage: 600 MG, TID
     Route: 048
     Dates: start: 20100210

REACTIONS (1)
  - Convulsion [Recovering/Resolving]
